FAERS Safety Report 4722296-9 (Version None)
Quarter: 2005Q3

REPORT INFORMATION
  Report Type: 
  Country: None (occurrence: None)
  Receive Date: 20050722
  Receipt Date: 20041014
  Transmission Date: 20060218
  Serious: No
  Sender: FDA-Public Use
  Company Number: US-GLAXOSMITHKLINE-A0529932A

PATIENT
  Age: 74 Year
  Sex: Female

DRUGS (8)
  1. AVANDIA [Suspect]
     Dosage: 4MG PER DAY
     Route: 048
     Dates: start: 20041012
  2. GLUCOPHAGE [Concomitant]
  3. STARLIX [Concomitant]
  4. LIPITOR [Concomitant]
  5. ACCUPRIL [Concomitant]
  6. ASPIRIN [Concomitant]
  7. XALATAN [Concomitant]
  8. VITAMINS [Concomitant]

REACTIONS (2)
  - FATIGUE [None]
  - MALAISE [None]
